FAERS Safety Report 9529299 (Version 1)
Quarter: 2013Q1

REPORT INFORMATION
  Report Type: Spontaneous
  Country: US (occurrence: None)
  Receive Date: 20130329
  Receipt Date: 20130329
  Transmission Date: 20140127
  Serious: Yes (Other)
  Sender: FDA-Public Use
  Company Number: 1000042602

PATIENT
  Age: 54 Year
  Sex: Female

DRUGS (9)
  1. LINZESS [Suspect]
     Indication: IRRITABLE BOWEL SYNDROME
     Dosage: 290 MCG, 1 IN 1 D
     Route: 048
     Dates: start: 201301
  2. LINZESS [Suspect]
     Indication: CONSTIPATION
     Dosage: 290 MCG, 1 IN 1 D
     Route: 048
     Dates: start: 201301
  3. APRISO [Concomitant]
  4. CREON [Concomitant]
  5. SYNTHROID [Concomitant]
  6. ATIVAN [Concomitant]
  7. ZETIA [Concomitant]
  8. SINGULAIR [Concomitant]
  9. REMERON [Concomitant]

REACTIONS (2)
  - Flatulence [None]
  - Drug ineffective [None]
